FAERS Safety Report 6588694-6 (Version None)
Quarter: 2010Q1

REPORT INFORMATION
  Report Type: 
  Country: None (occurrence: None)
  Receive Date: 20100218
  Receipt Date: 20100211
  Transmission Date: 20100710
  Serious: Yes (Death, Life-Threatening, Hospitalization, Other)
  Sender: FDA-Public Use
  Company Number: GB-BAYER-200943873GPV

PATIENT
  Sex: Male

DRUGS (5)
  1. PARACETAMOL [Suspect]
     Indication: DRUG USE FOR UNKNOWN INDICATION
     Route: 048
  2. ASPIRIN [Suspect]
     Indication: DRUG USE FOR UNKNOWN INDICATION
  3. PHENYLBUTAZONE [Suspect]
     Indication: DRUG USE FOR UNKNOWN INDICATION
  4. DIPHENYLHYDANTOIN [Suspect]
     Indication: DRUG USE FOR UNKNOWN INDICATION
  5. PRIMIDONE [Suspect]
     Indication: DRUG USE FOR UNKNOWN INDICATION

REACTIONS (3)
  - CARDIAC ARREST [None]
  - COMA [None]
  - LIVER INJURY [None]
